FAERS Safety Report 10508861 (Version 1)
Quarter: 2014Q4

REPORT INFORMATION
  Report Type: Spontaneous
  Country: US (occurrence: None)
  Receive Date: 20141008
  Receipt Date: 20141008
  Transmission Date: 20150528
  Serious: No
  Sender: FDA-Public Use
  Company Number: None

PATIENT
  Sex: Male

DRUGS (1)
  1. NIACIN ER [Suspect]
     Active Substance: NIACIN
     Dosage: 1
     Route: 048

REACTIONS (3)
  - Flushing [None]
  - Influenza like illness [None]
  - Malaise [None]
